FAERS Safety Report 6519708-7 (Version None)
Quarter: 2009Q4

REPORT INFORMATION
  Report Type: 
  Country: None (occurrence: None)
  Receive Date: 20091228
  Receipt Date: 20091216
  Transmission Date: 20100525
  Serious: Yes (Disabling, Other)
  Sender: FDA-Public Use
  Company Number: US-PFIZER INC-2009240183

PATIENT
  Sex: Male
  Weight: 96.15 kg

DRUGS (1)
  1. VIAGRA [Suspect]
     Indication: ERECTILE DYSFUNCTION
     Dosage: 50MG AND 100MG
     Route: 048
     Dates: start: 19990401, end: 20050801

REACTIONS (1)
  - OPTIC ISCHAEMIC NEUROPATHY [None]
